FAERS Safety Report 10372745 (Version 1)
Quarter: 2014Q3

REPORT INFORMATION
  Report Type: Spontaneous
  Country: US (occurrence: US)
  Receive Date: 20140808
  Receipt Date: 20140808
  Transmission Date: 20150326
  Serious: No
  Sender: FDA-Public Use
  Company Number: US-BRISTOL-MYERS SQUIBB COMPANY-19407576

PATIENT
  Age: 58 Year
  Sex: Male
  Weight: 68.03 kg

DRUGS (10)
  1. AMBIEN [Concomitant]
     Active Substance: ZOLPIDEM TARTRATE
     Dosage: TAB
  2. LORAZEPAM. [Concomitant]
     Active Substance: LORAZEPAM
     Dosage: TABLET
  3. MULTIVITAMIN [Concomitant]
     Active Substance: VITAMINS
     Dosage: TABLET
  4. LOMOTIL [Concomitant]
     Active Substance: ATROPINE SULFATE\DIPHENOXYLATE HYDROCHLORIDE
     Dosage: TABLET
  5. PROBIOTICA [Concomitant]
     Active Substance: PROBIOTICS NOS
     Dosage: CAP
  6. SPRYCEL [Suspect]
     Active Substance: DASATINIB
     Dosage: TABLETS.1 TABLET BY MOUTH EVERY DAY
     Route: 048
  7. VICODIN ES [Concomitant]
     Active Substance: ACETAMINOPHEN\HYDROCODONE BITARTRATE
     Dosage: 1 DF : 7.5-300?TABLET
  8. RANITIDINE [Concomitant]
     Active Substance: RANITIDINE\RANITIDINE HYDROCHLORIDE
     Dosage: TABLET
  9. VIAGRA [Concomitant]
     Active Substance: SILDENAFIL CITRATE
     Dosage: TABLET
  10. FLONASE [Concomitant]
     Active Substance: FLUTICASONE PROPIONATE

REACTIONS (3)
  - Syncope [Unknown]
  - Dyspnoea [Unknown]
  - Red blood cell count decreased [Unknown]
